FAERS Safety Report 6474615-3 (Version None)
Quarter: 2009Q4

REPORT INFORMATION
  Report Type: 
  Country: None (occurrence: None)
  Receive Date: 20091204
  Receipt Date: 20090417
  Transmission Date: 20100525
  Serious: Yes (Hospitalization)
  Sender: FDA-Public Use
  Company Number: MX-ELI_LILLY_AND_COMPANY-MX200901004204

PATIENT
  Age: 55 Year
  Sex: Female
  Weight: 52 kg

DRUGS (10)
  1. HUMULIN N [Suspect]
     Indication: BLOOD GLUCOSE INCREASED
     Dosage: 30 IU, EACH MORNING
     Route: 058
     Dates: start: 20081001, end: 20090120
  2. HUMULIN N [Suspect]
     Dosage: 15 IU, EACH EVENING
     Route: 058
     Dates: start: 20081001, end: 20090120
  3. HUMULIN N [Suspect]
     Dosage: 25 IU, EACH MORNING
     Route: 058
  4. HUMULIN N [Suspect]
     Dosage: 15 IU, EACH EVENING
     Route: 058
  5. ASPIRIN [Concomitant]
     Dosage: UNK, UNKNOWN
     Route: 065
  6. PLAVIX [Concomitant]
     Dosage: UNK, DAILY (1/D)
     Route: 065
  7. SIMVASTATIN [Concomitant]
     Indication: CARDIAC DISORDER
     Dosage: UNK, UNKNOWN
     Route: 065
  8. METOPROLOL TARTRATE [Concomitant]
     Indication: BLOOD CHOLESTEROL
     Dosage: UNK, UNKNOWN
     Route: 065
  9. METFORMIN HCL [Concomitant]
     Dosage: UNK, UNKNOWN
     Route: 065
  10. CAPTOPRIL [Concomitant]
     Indication: BLOOD PRESSURE
     Dosage: UNK, UNKNOWN
     Route: 065

REACTIONS (3)
  - DIZZINESS [None]
  - POST PROCEDURAL INFECTION [None]
  - WITHDRAWAL SYNDROME [None]
